FAERS Safety Report 20172916 (Version 3)
Quarter: 2022Q3

REPORT INFORMATION
  Report Type: Report from Study
  Country: AR (occurrence: AR)
  Receive Date: 20211211
  Receipt Date: 20220722
  Transmission Date: 20221026
  Serious: Yes (Other)
  Sender: FDA-Public Use
  Company Number: AR-NOVARTISPH-NVSC2021AR279702

PATIENT
  Age: 58 Year
  Sex: Female

DRUGS (1)
  1. MAYZENT [Suspect]
     Active Substance: SIPONIMOD
     Indication: Multiple sclerosis
     Dosage: 2 MG, QD
     Route: 048
     Dates: start: 20211103

REACTIONS (9)
  - Multiple sclerosis [Recovered/Resolved]
  - Emotional distress [Unknown]
  - Malaise [Unknown]
  - Fear [Recovering/Resolving]
  - Anxiety [Recovering/Resolving]
  - Dyspnoea [Unknown]
  - Influenza [Unknown]
  - Product supply issue [Unknown]
  - Drug ineffective [Unknown]

NARRATIVE: CASE EVENT DATE: 20211129
